FAERS Safety Report 9100247 (Version 1)
Quarter: 2013Q1

REPORT INFORMATION
  Report Type: Spontaneous
  Country: FR (occurrence: FR)
  Receive Date: 20130214
  Receipt Date: 20130214
  Transmission Date: 20140127
  Serious: Yes (Other)
  Sender: FDA-Public Use
  Company Number: FR-AMGEN-FRASP2013009569

PATIENT
  Age: 59 Year
  Sex: Female

DRUGS (5)
  1. NEUPOGEN [Suspect]
     Indication: NEUTROPENIA
     Dosage: UNK
     Dates: start: 20121221, end: 20121221
  2. OXALIPLATIN [Suspect]
     Indication: PANCREATIC CARCINOMA
     Dosage: 5.6667 MG/M2 (85 MG/M2, ONCE IN 15 DAYS)
     Route: 042
     Dates: start: 20121221, end: 20121221
  3. IRINOTECAN [Suspect]
     Indication: PANCREATIC CARCINOMA
     Dosage: 12 MG/M2 (180 MG/M2, ONCE IN 15 DAYS)
     Route: 042
     Dates: start: 20121221, end: 20121221
  4. CALCIUM FOLINATE [Suspect]
     Indication: PANCREATIC CARCINOMA
     Dosage: 13.3333MG/M2(200 MG/M2, ONCE IN 15 DAYS)
     Route: 042
     Dates: start: 20121221, end: 20121221
  5. FLUOROURACILE [Suspect]
     Indication: NEUTROPENIA
     Dosage: 50 MG/ML, UNK
     Dates: start: 20121221, end: 20121221

REACTIONS (1)
  - Hepatocellular injury [Not Recovered/Not Resolved]
